FAERS Safety Report 13766481 (Version 1)
Quarter: 2017Q3

REPORT INFORMATION
  Report Type: Spontaneous
  Country: US (occurrence: US)
  Receive Date: 20170719
  Receipt Date: 20170719
  Transmission Date: 20171127
  Serious: No
  Sender: FDA-Public Use
  Company Number: US-BAUSCH-BL-2016-019413

PATIENT
  Sex: Female
  Weight: 54.48 kg

DRUGS (1)
  1. XIFAXAN [Suspect]
     Active Substance: RIFAXIMIN
     Indication: IRRITABLE BOWEL SYNDROME
     Dosage: HALF MG (UNSPECIFIED)
     Route: 048
     Dates: start: 20160704

REACTIONS (1)
  - Drug ineffective [Recovered/Resolved]
